FAERS Safety Report 6003178-1 (Version None)
Quarter: 2008Q4

REPORT INFORMATION
  Report Type: 
  Country: None (occurrence: None)
  Receive Date: 20081216
  Receipt Date: 20081211
  Transmission Date: 20090506
  Serious: Yes (Hospitalization)
  Sender: FDA-Public Use
  Company Number: US-JNJFOC-20080101112

PATIENT
  Sex: Male
  Weight: 68.04 kg

DRUGS (5)
  1. RISPERDAL [Suspect]
     Indication: DEMENTIA
     Route: 048
  2. ARICEPT [Concomitant]
     Indication: MEMORY IMPAIRMENT
     Route: 048
  3. NAMENDA [Concomitant]
     Indication: MEMORY IMPAIRMENT
     Route: 048
  4. ZOLOFT [Concomitant]
     Indication: DEPRESSION
  5. MEGACE [Concomitant]
     Indication: APPETITE DISORDER

REACTIONS (8)
  - BALANCE DISORDER [None]
  - DEHYDRATION [None]
  - FALL [None]
  - INFECTION [None]
  - MOTOR DYSFUNCTION [None]
  - ORTHOSTATIC HYPOTENSION [None]
  - PARKINSONISM [None]
  - UPPER LIMB FRACTURE [None]
